FAERS Safety Report 12225865 (Version 1)
Quarter: 2016Q1

REPORT INFORMATION
  Report Type: Spontaneous
  Country: US (occurrence: None)
  Receive Date: 20160330
  Receipt Date: 20160330
  Transmission Date: 20160526
  Serious: No
  Sender: FDA-Public Use
  Company Number: None

PATIENT
  Age: 40 Year
  Sex: Female
  Weight: 77.11 kg

DRUGS (4)
  1. LATISSE [Suspect]
     Active Substance: BIMATOPROST
     Indication: MADAROSIS
     Dosage: 2 YEARS ONCE A DAY APPLIED TO A SURFACE, USUALLY THE SKIN
  2. XANAX [Concomitant]
     Active Substance: ALPRAZOLAM
  3. VITAMINS [Concomitant]
     Active Substance: VITAMINS
  4. ADDERALL [Concomitant]
     Active Substance: AMPHETAMINE ASPARTATE\AMPHETAMINE SULFATE\DEXTROAMPHETAMINE SACCHARATE\DEXTROAMPHETAMINE SULFATE

REACTIONS (3)
  - Madarosis [None]
  - Condition aggravated [None]
  - Therapy cessation [None]

NARRATIVE: CASE EVENT DATE: 20160101
